FAERS Safety Report 5622486-7 (Version None)
Quarter: 2008Q1

REPORT INFORMATION
  Report Type: 
  Country: None (occurrence: None)
  Receive Date: 20080114
  Receipt Date: 20070814
  Transmission Date: 20080703
  Serious: Yes (Hospitalization)
  Sender: FDA-Public Use
  Company Number: A03200705275

PATIENT

DRUGS (1)
  1. PLAVIX [Suspect]
     Indication: STENT PLACEMENT
     Dosage: - ORAL
     Route: 048

REACTIONS (2)
  - DRUG RESISTANCE [None]
  - STENT OCCLUSION [None]
